FAERS Safety Report 18020453 (Version 2)
Quarter: 2020Q3

REPORT INFORMATION
  Report Type: Other
  Country: CN (occurrence: CN)
  Receive Date: 20200714
  Receipt Date: 20200722
  Transmission Date: 20201103
  Serious: Yes (Other)
  Sender: FDA-Public Use
  Company Number: CN-ROCHE-2637209

PATIENT

DRUGS (3)
  1. ASPIRIN. [Concomitant]
     Active Substance: ASPIRIN
     Route: 065
  2. PEGINTERFERON ALFA?2A. [Suspect]
     Active Substance: PEGINTERFERON ALFA-2A
     Indication: MYELOPROLIFERATIVE NEOPLASM
     Dosage: INITIALLY EVERY 2 WEEKS AND ESCALATED TO WEEKLY
     Route: 058
  3. CLOPIDOGREL [Concomitant]
     Active Substance: CLOPIDOGREL BISULFATE
     Route: 065

REACTIONS (7)
  - Rash [Recovered/Resolved]
  - Mucosal inflammation [Recovered/Resolved]
  - Hepatotoxicity [Recovered/Resolved]
  - Pericarditis [Recovered/Resolved]
  - Anaemia [Recovered/Resolved]
  - Myasthenia gravis [Recovered/Resolved]
  - Neutropenia [Recovered/Resolved]
